FAERS Safety Report 19493468 (Version 3)
Quarter: 2021Q3

REPORT INFORMATION
  Report Type: Spontaneous
  Country: US (occurrence: US)
  Receive Date: 20210705
  Receipt Date: 20210811
  Transmission Date: 20211014
  Serious: Yes (Other)
  Sender: FDA-Public Use
  Company Number: US-PFIZER INC-2021626259

PATIENT
  Age: 70 Year
  Sex: Female

DRUGS (1)
  1. IBRANCE [Suspect]
     Active Substance: PALBOCICLIB
     Indication: BREAST CANCER FEMALE
     Dosage: 100 MG, CYCLIC (DAILY, 21 DAYS THEN A WEEK OFF)
     Route: 048
     Dates: start: 20210518, end: 20210617

REACTIONS (7)
  - Nausea [Unknown]
  - Blood count abnormal [Unknown]
  - White blood cell count decreased [Unknown]
  - Fatigue [Unknown]
  - Dizziness [Unknown]
  - Alopecia [Unknown]
  - Haemoglobin decreased [Unknown]
